FAERS Safety Report 8202833-2 (Version None)
Quarter: 2012Q1

REPORT INFORMATION
  Report Type: 
  Country: None (occurrence: None)
  Receive Date: 20120312
  Receipt Date: 20120312
  Transmission Date: 20120608
  Serious: Yes (Death)
  Sender: FDA-Public Use
  Company Number: None

PATIENT
  Age: 51 Year
  Sex: Male
  Weight: 91.172 kg

DRUGS (2)
  1. RITUXAN [Suspect]
     Indication: CHRONIC LYMPHOCYTIC LEUKAEMIA
     Dosage: 375MG/M2
     Route: 042
     Dates: start: 20120202, end: 20120202
  2. RITUXAN [Concomitant]
     Dosage: 375MG/M2
     Route: 042
     Dates: start: 20120202, end: 20120202

REACTIONS (5)
  - RESPIRATORY DISTRESS [None]
  - TUMOUR LYSIS SYNDROME [None]
  - UNRESPONSIVE TO STIMULI [None]
  - CHILLS [None]
  - CARDIAC ARREST [None]
